FAERS Safety Report 5176737-6 (Version None)
Quarter: 2006Q4

REPORT INFORMATION
  Report Type: 
  Country: None (occurrence: None)
  Receive Date: 20061211
  Receipt Date: 20061211
  Transmission Date: 20070319
  Serious: No
  Sender: FDA-Public Use
  Company Number: None

PATIENT
  Age: 54 Year
  Sex: Female

DRUGS (1)
  1. BACLOFEN [Suspect]
     Indication: STIFF-MAN SYNDROME
     Dosage: USE 5 TABLETS TWICE A DAY
     Dates: start: 20061015

REACTIONS (3)
  - BALANCE DISORDER [None]
  - DECREASED ACTIVITY [None]
  - DRUG INEFFECTIVE [None]
